FAERS Safety Report 5609744-7 (Version None)
Quarter: 2008Q1

REPORT INFORMATION
  Report Type: 
  Country: None (occurrence: None)
  Receive Date: 20080131
  Receipt Date: 20071016
  Transmission Date: 20080703
  Serious: No
  Sender: FDA-Public Use
  Company Number: US-BAYER-200713365BCC

PATIENT
  Sex: Female
  Weight: 70 kg

DRUGS (5)
  1. ALEVE [Suspect]
     Indication: ARTHRITIS
     Dosage: TOTAL DAILY DOSE: 220 MG  UNIT DOSE: 220 MG
     Route: 048
  2. WATER PILL [Concomitant]
  3. GENERIC ZOCOR [Concomitant]
  4. FOSAMAX [Concomitant]
  5. GLUCOSAMINE [Concomitant]

REACTIONS (1)
  - ABDOMINAL PAIN UPPER [None]
